FAERS Safety Report 25334935 (Version 1)
Quarter: 2025Q2

REPORT INFORMATION
  Report Type: Spontaneous
  Country: US (occurrence: US)
  Receive Date: 20250520
  Receipt Date: 20250520
  Transmission Date: 20250716
  Serious: No
  Sender: BIOCON
  Company Number: US-BMS-IMIDS-REMS_SI-1747069235365

PATIENT
  Age: 79 Year
  Sex: Female

DRUGS (1)
  1. LENALIDOMIDE [Suspect]
     Active Substance: LENALIDOMIDE
     Indication: Product used for unknown indication
     Dates: start: 20241023

REACTIONS (3)
  - Blister [Unknown]
  - Nausea [Unknown]
  - Pyrexia [Unknown]
